FAERS Safety Report 4752948-6 (Version None)
Quarter: 2005Q3

REPORT INFORMATION
  Report Type: 
  Country: None (occurrence: None)
  Receive Date: 20050825
  Receipt Date: 20050810
  Transmission Date: 20060218
  Serious: Yes (Life-Threatening)
  Sender: FDA-Public Use
  Company Number: HQWYE836110AUG05

PATIENT
  Age: 40 Year
  Sex: Female
  Weight: 76.27 kg

DRUGS (3)
  1. ADVIL [Suspect]
     Indication: LOWER LIMB FRACTURE
     Dosage: 1 CAPSULE, ORAL
     Route: 048
  2. ALEVE [Suspect]
  3. PREVACID [Concomitant]

REACTIONS (8)
  - ANGIONEUROTIC OEDEMA [None]
  - BLOOD PRESSURE DECREASED [None]
  - CHEST DISCOMFORT [None]
  - DYSARTHRIA [None]
  - DYSPNOEA [None]
  - FACIAL PALSY [None]
  - HYPERSENSITIVITY [None]
  - WHEEZING [None]
